FAERS Safety Report 5054523-5 (Version None)
Quarter: 2006Q3

REPORT INFORMATION
  Report Type: 
  Country: None (occurrence: None)
  Receive Date: 20060714
  Receipt Date: 20060703
  Transmission Date: 20061208
  Serious: Yes (Other)
  Sender: FDA-Public Use
  Company Number: 2006082779

PATIENT
  Age: 45 Year
  Sex: Male

DRUGS (1)
  1. CLINDAMYCIN HCL [Suspect]
     Indication: TOOTH INFECTION
     Dates: start: 20051101, end: 20050101

REACTIONS (5)
  - DIARRHOEA [None]
  - GASTRIC DISORDER [None]
  - PHARYNGITIS BACTERIAL [None]
  - PSEUDOMONAS INFECTION [None]
  - TONSILLITIS BACTERIAL [None]
